FAERS Safety Report 5423001-3 (Version None)
Quarter: 2007Q3

REPORT INFORMATION
  Report Type: 
  Country: None (occurrence: None)
  Receive Date: 20070820
  Receipt Date: 20070807
  Transmission Date: 20080115
  Serious: Yes (Hospitalization)
  Sender: FDA-Public Use
  Company Number: 430004M07FRA

PATIENT
  Age: 50 Year
  Sex: Male

DRUGS (25)
  1. NOVANTRONE [Suspect]
     Indication: NON-HODGKIN'S LYMPHOMA RECURRENT
     Dosage: 17 MG, 1 IN 1 DAYS, INTRAVENOUS (NOT OTHERWISE SPECIFIED)
     Route: 042
     Dates: start: 20070423, end: 20070423
  2. NEFOPAM HYDROCHLORIDE [Suspect]
     Dosage: 20 MG, 4 IN 1 DAYS, INTRAVENOUS (NOT OTHERWISE SPECIFIED)
     Route: 042
     Dates: start: 20070504, end: 20070501
  3. BACTRIM [Suspect]
     Dosage: 1 DOSAGE FORMS, 1 IN 1 DAYS, INTRAVENOUS (NOT OTHERWISE SPECIFIED)
     Route: 042
     Dates: start: 20070503
  4. CEFOTAXIME SODIUM [Suspect]
     Dosage: 1 G, 3 IN 1 DAYS, INTRAVENOUS (NOT OTHERWISE SPECIFIED)
     Route: 042
     Dates: start: 20070503, end: 20070501
  5. IFOSFAMIDE [Suspect]
     Indication: NON-HODGKIN'S LYMPHOMA RECURRENT
     Dosage: 1.7 G, 1 IN 1 DAYS, INTRAVENOUS (NOT OTHERWISE SPECIFIED)
     Route: 042
     Dates: start: 20070423, end: 20070426
  6. VINORELBINE [Suspect]
     Indication: NON-HODGKIN'S LYMPHOMA RECURRENT
     Dosage: 40 MG, 1 IN 1 DAYS, INTRAVENOUS (NOT OTHERWISE SPECIFIED)
     Route: 042
     Dates: start: 20070423, end: 20070423
  7. FLUCONAZOLE [Suspect]
     Dosage: 100 MG, 2 IN 1 DAYS, INTRAVENOUS (NOT OTHERWISE SPECIFIED)
     Route: 042
     Dates: start: 20070503, end: 20070501
  8. VANCOMYCIN [Suspect]
     Dosage: 1 G, 2 IN 1 DAYS, INTRAVENOUS (NOT OTHERWISE SPECIFIED)
     Route: 042
     Dates: start: 20070503, end: 20070501
  9. NORVIR [Concomitant]
  10. TELZIR (FOSAMPRENAVIR) [Concomitant]
  11. RETROVIR [Concomitant]
  12. EMTRIVA [Concomitant]
  13. ASPIRIN [Concomitant]
  14. PLAVIX [Concomitant]
  15. SUBUTEX [Concomitant]
  16. GLYCERYL TRINITRATE [Concomitant]
  17. NEORECORMON (EPOETIN BETA) [Concomitant]
  18. CORTANCYL (PREDNISONE /00044701/) [Concomitant]
  19. ACETAMINOPHEN [Concomitant]
  20. KETOPROFEN [Concomitant]
  21. AUGMENTIN '125' [Concomitant]
  22. SILOMAT (CLOBUTINOL HYDROCHLORIDE) [Concomitant]
  23. PANTOPRAZOLE SODIUM [Concomitant]
  24. AMIKLIN (AMIKACIN /00391001/) [Concomitant]
  25. LOVENOX [Concomitant]

REACTIONS (3)
  - GENERAL PHYSICAL HEALTH DETERIORATION [None]
  - MUCOSAL INFLAMMATION [None]
  - THROMBOCYTOPENIA [None]
